FAERS Safety Report 6856988-2 (Version None)
Quarter: 2010Q3

REPORT INFORMATION
  Report Type: 
  Country: None (occurrence: None)
  Receive Date: 20100719
  Receipt Date: 20100712
  Transmission Date: 20110219
  Serious: Yes (Other)
  Sender: FDA-Public Use
  Company Number: A0859603A

PATIENT
  Age: 45 Year
  Sex: Male
  Weight: 56.8 kg

DRUGS (2)
  1. ADVAIR DISKUS 100/50 [Suspect]
     Indication: PRODUCT USED FOR UNKNOWN INDICATION
     Route: 055
     Dates: start: 20080219, end: 20100521
  2. HEMOCYTE [Concomitant]

REACTIONS (9)
  - DIARRHOEA [None]
  - DRUG ADMINISTRATION ERROR [None]
  - EAR DISORDER [None]
  - HEADACHE [None]
  - MIGRAINE [None]
  - MOBILITY DECREASED [None]
  - MUSCLE ATROPHY [None]
  - NASAL DISCOMFORT [None]
  - WEIGHT DECREASED [None]
